FAERS Safety Report 12174360 (Version 2)
Quarter: 2016Q3

REPORT INFORMATION
  Report Type: Report from Study
  Country: US (occurrence: US)
  Receive Date: 20160312
  Receipt Date: 20160715
  Transmission Date: 20161109
  Serious: Yes (Other)
  Sender: FDA-Public Use
  Company Number: US-BRISTOL-MYERS SQUIBB COMPANY-BMS-2016-015723

PATIENT
  Age: 60 Year
  Sex: Male

DRUGS (2)
  1. IPILIMUMAB [Suspect]
     Active Substance: IPILIMUMAB
     Indication: METASTATIC MALIGNANT MELANOMA
     Dosage: 10 MG/KG, Q3WK
     Route: 065
     Dates: end: 201206
  2. IPILIMUMAB [Suspect]
     Active Substance: IPILIMUMAB
     Dosage: 3 MG/KG, UNK
     Route: 065
     Dates: end: 201402

REACTIONS (6)
  - Adrenal insufficiency [Unknown]
  - Atrial fibrillation [Unknown]
  - Left ventricular dysfunction [Unknown]
  - Rash [Unknown]
  - Off label use [Unknown]
  - Hypophysitis [Unknown]
